FAERS Safety Report 10018313 (Version 1)
Quarter: 2014Q1

REPORT INFORMATION
  Report Type: Spontaneous
  Country: US (occurrence: US)
  Receive Date: 20140318
  Receipt Date: 20140318
  Transmission Date: 20141002
  Serious: No
  Sender: FDA-Public Use
  Company Number: US-BRISTOL-MYERS SQUIBB COMPANY-19976067

PATIENT
  Age: 83 Year
  Sex: Male
  Weight: 72.56 kg

DRUGS (4)
  1. ERBITUX [Suspect]
     Indication: ANAL NEOPLASM
     Route: 042
  2. METOPROLOL [Concomitant]
  3. ASPIRIN [Concomitant]
  4. PRILOSEC [Concomitant]

REACTIONS (3)
  - Rash pruritic [Unknown]
  - Skin exfoliation [Unknown]
  - Off label use [Unknown]
